FAERS Safety Report 24789163 (Version 1)
Quarter: 2024Q4

REPORT INFORMATION
  Report Type: Spontaneous
  Country: CH (occurrence: CH)
  Receive Date: 20241230
  Receipt Date: 20241230
  Transmission Date: 20250115
  Serious: Yes (Death)
  Sender: AMGEN
  Company Number: CH-AMGEN-CHESP2024253843

PATIENT

DRUGS (1)
  1. PROLIA [Suspect]
     Active Substance: DENOSUMAB
     Indication: Osteogenesis imperfecta
     Dosage: UNK
     Route: 065

REACTIONS (3)
  - Death [Fatal]
  - Body height decreased [Unknown]
  - Off label use [Unknown]
